FAERS Safety Report 23462805 (Version 2)
Quarter: 2024Q1

REPORT INFORMATION
  Report Type: Spontaneous
  Country: US (occurrence: US)
  Receive Date: 20240131
  Receipt Date: 20240131
  Transmission Date: 20240410
  Serious: Yes (Other)
  Sender: FDA-Public Use
  Company Number: US-GILEAD-2024-0660145

PATIENT
  Sex: Male

DRUGS (2)
  1. TYBOST [Suspect]
     Active Substance: COBICISTAT
     Indication: HIV infection
     Dosage: UNKNOWN DOSE FOR MANY YEARS
     Route: 065
  2. BRILINTA [Suspect]
     Active Substance: TICAGRELOR
     Indication: Coronary arterial stent insertion
     Dosage: UNK, FOR A COUPLE DAYS
     Route: 065

REACTIONS (3)
  - Cardiac operation [Unknown]
  - Coronary arterial stent insertion [Unknown]
  - Contraindicated product administered [Recovered/Resolved]
